FAERS Safety Report 7841774-7 (Version None)
Quarter: 2011Q4

REPORT INFORMATION
  Report Type: 
  Country: None (occurrence: None)
  Receive Date: 20111019
  Receipt Date: 20110929
  Transmission Date: 20120403
  Serious: Yes (Other)
  Sender: FDA-Public Use
  Company Number: 2011SP046345

PATIENT

DRUGS (2)
  1. TEMOZOLOMIDE [Suspect]
     Indication: GLIOMA
     Dosage: 200 MG/M2; PO
     Route: 048
  2. 13-CIS RETINOIC ACID (TRETINOIN) [Suspect]
     Indication: GLIOMA
     Dosage: 60 MG/M2; QD; PO
     Route: 048

REACTIONS (5)
  - LEUKOPENIA [None]
  - PULMONARY EMBOLISM [None]
  - DEEP VEIN THROMBOSIS [None]
  - THROMBOCYTOPENIA [None]
  - HAEMATOTOXICITY [None]
